FAERS Safety Report 4688521-8 (Version None)
Quarter: 2005Q2

REPORT INFORMATION
  Report Type: 
  Country: None (occurrence: None)
  Receive Date: 20050609
  Receipt Date: 20050528
  Transmission Date: 20051028
  Serious: Yes (Hospitalization)
  Sender: FDA-Public Use
  Company Number: 2005046080

PATIENT
  Age: 11 Year
  Sex: Male
  Weight: 43 kg

DRUGS (5)
  1. ZITHROMAX [Suspect]
     Indication: NASOPHARYNGITIS
     Dosage: 370 MG (370 MG, 1 IN 1 D), ORAL
     Route: 048
     Dates: start: 20050316, end: 20050316
  2. CELESTAMINE TAB [Concomitant]
  3. ALL OTHER THERAPEUTIC PRODUCTS (ALL OTHER THERAPEUTIC PRODUCTS) [Concomitant]
  4. LACTOBACILLUS ACIDOPHILUS (LACTOBACILLUS ACIDOPHILUS) [Concomitant]
  5. CALONAL (PARACETAMOL) [Concomitant]

REACTIONS (6)
  - CONVULSION [None]
  - DELIRIUM [None]
  - ENCEPHALITIS VIRAL [None]
  - MOVEMENT DISORDER [None]
  - TONIC CONVULSION [None]
  - VOMITING [None]
